FAERS Safety Report 20494443 (Version 4)
Quarter: 2023Q1

REPORT INFORMATION
  Report Type: Report from Study
  Country: US (occurrence: US)
  Receive Date: 20220221
  Receipt Date: 20230203
  Transmission Date: 20230418
  Serious: No
  Sender: FDA-Public Use
  Company Number: US-Ipsen Biopharmaceuticals, Inc.-2022-04165

PATIENT
  Age: 77 Year
  Sex: Male

DRUGS (4)
  1. SOMATULINE DEPOT [Suspect]
     Active Substance: LANREOTIDE ACETATE
     Indication: Acromegaly
     Dosage: 90MG, EVERY FOUR WEEKS, SUBCUTANEOUSLY
     Route: 058
     Dates: start: 20220118, end: 2022
  2. SOMATULINE DEPOT [Suspect]
     Active Substance: LANREOTIDE ACETATE
     Dosage: 90MG, EVERY SIX WEEKS, BUTTOCKS, DEEP SUBCUTANEOUS
     Route: 058
     Dates: start: 20220118
  3. COVID booster [Concomitant]
     Indication: COVID-19
     Dates: start: 2022
  4. METFORMIN [Concomitant]
     Active Substance: METFORMIN HYDROCHLORIDE

REACTIONS (2)
  - Diarrhoea [Not Recovered/Not Resolved]
  - Inappropriate schedule of product administration [Unknown]

NARRATIVE: CASE EVENT DATE: 20220118
